FAERS Safety Report 4855036-3 (Version None)
Quarter: 2005Q4

REPORT INFORMATION
  Report Type: 
  Country: None (occurrence: None)
  Receive Date: 20051214
  Receipt Date: 20051201
  Transmission Date: 20060501
  Serious: Yes (Death, Other)
  Sender: FDA-Public Use
  Company Number: 2005162738

PATIENT
  Age: 60 Year
  Sex: Male

DRUGS (2)
  1. DIFLUCAN [Suspect]
     Indication: SYSTEMIC MYCOSIS
     Dosage: ORAL
     Route: 048
  2. RIFAMPICIN [Concomitant]

REACTIONS (3)
  - CONDITION AGGRAVATED [None]
  - HYPOGLYCAEMIA [None]
  - PULMONARY TUBERCULOSIS [None]
